FAERS Safety Report 9325262 (Version 1)
Quarter: 2013Q2

REPORT INFORMATION
  Report Type: Report from Study
  Country: ES (occurrence: ES)
  Receive Date: 20130604
  Receipt Date: 20130604
  Transmission Date: 20140414
  Serious: Yes (Death, Hospitalization)
  Sender: FDA-Public Use
  Company Number: ES-ROCHE-1230018

PATIENT
  Sex: 0

DRUGS (3)
  1. MYCOPHENOLATE MOFETIL [Suspect]
     Indication: IMMUNOSUPPRESSANT DRUG THERAPY
     Route: 065
  2. TACROLIMUS [Suspect]
     Indication: IMMUNOSUPPRESSANT DRUG THERAPY
     Route: 065
  3. CYCLOSPORINE [Suspect]
     Indication: IMMUNOSUPPRESSANT DRUG THERAPY
     Route: 065

REACTIONS (11)
  - Infection [Fatal]
  - Pneumonia [Unknown]
  - Pyelonephritis [Unknown]
  - Hepatobiliary infection [Unknown]
  - Skin infection [Unknown]
  - Soft tissue infection [Unknown]
  - Arthritis [Unknown]
  - Bacteraemia [Unknown]
  - Infection [Unknown]
  - Cytomegalovirus test positive [Unknown]
  - Herpes zoster [Unknown]
